FAERS Safety Report 9549752 (Version 1)
Quarter: 2013Q3

REPORT INFORMATION
  Report Type: Spontaneous
  Country: US (occurrence: US)
  Receive Date: 20130924
  Receipt Date: 20130924
  Transmission Date: 20140515
  Serious: No
  Sender: FDA-Public Use
  Company Number: US-ALLERGAN-1309946US

PATIENT
  Age: 79 Year
  Sex: Female

DRUGS (5)
  1. LUMIGAN 0.01% [Suspect]
     Indication: GLAUCOMA
     Dosage: 2 GTT, QAM
     Route: 047
     Dates: start: 2011
  2. COMBIGAN[R] [Concomitant]
     Indication: GLAUCOMA
  3. BRIMONIDINE TARTRATE, 0.2% [Concomitant]
     Indication: GLAUCOMA
     Dosage: 2 GTT, BID
     Route: 047
  4. TIMOLOL MALEATE [Concomitant]
     Indication: GLAUCOMA
     Dosage: 2 GTT, BID
     Route: 047
  5. TOBRAMYCIN [Concomitant]
     Indication: EYE INFLAMMATION
     Dosage: 1 GTT, BID
     Route: 047

REACTIONS (2)
  - Scleral hyperaemia [Unknown]
  - Eye pruritus [Unknown]
